FAERS Safety Report 6318432-3 (Version None)
Quarter: 2009Q3

REPORT INFORMATION
  Report Type: 
  Country: None (occurrence: None)
  Receive Date: 20090821
  Receipt Date: 20090819
  Transmission Date: 20100115
  Serious: No
  Sender: FDA-Public Use
  Company Number: US-B.I. PHARMACEUTICALS,INC./RIDGEFIELD-2009-BP-09794BP

PATIENT
  Age: 70 Year
  Sex: Male

DRUGS (1)
  1. MOBIC [Suspect]
     Indication: ARTHRITIS
     Dosage: 7.5 MG
     Route: 048
     Dates: start: 20070101, end: 20090801

REACTIONS (3)
  - CATARACT [None]
  - MACULAR DEGENERATION [None]
  - VISION BLURRED [None]
